FAERS Safety Report 12588852 (Version 1)
Quarter: 2016Q3

REPORT INFORMATION
  Report Type: Spontaneous
  Country: US (occurrence: US)
  Receive Date: 20160725
  Receipt Date: 20160725
  Transmission Date: 20161109
  Serious: No
  Sender: FDA-Public Use
  Company Number: US-JNJFOC-20160625520

PATIENT
  Age: 68 Year
  Sex: Male
  Weight: 90.27 kg

DRUGS (1)
  1. TYLENOL EXTRA STRENGTH [Suspect]
     Active Substance: ACETAMINOPHEN
     Indication: PYREXIA
     Dosage: AS NEEDED
     Route: 048

REACTIONS (1)
  - Liver function test increased [Not Recovered/Not Resolved]
